FAERS Safety Report 6004548-8 (Version None)
Quarter: 2008Q4

REPORT INFORMATION
  Report Type: 
  Country: None (occurrence: None)
  Receive Date: 20081216
  Receipt Date: 20081208
  Transmission Date: 20090506
  Serious: Yes (Death, Hospitalization)
  Sender: FDA-Public Use
  Company Number: US-GILEAD-2008-0018887

PATIENT
  Sex: Female

DRUGS (18)
  1. LETAIRIS [Suspect]
     Indication: PULMONARY ARTERIAL HYPERTENSION
     Route: 048
     Dates: start: 20080623, end: 20080909
  2. IMURAN [Concomitant]
  3. PREDNISONE TAB [Concomitant]
  4. PLAQUENIL [Concomitant]
  5. SPIRIVA [Concomitant]
  6. ALBUTEROL [Concomitant]
  7. OXYGEN [Concomitant]
  8. CALCIUM PLUS D [Concomitant]
  9. MULTI-VITAMIN [Concomitant]
  10. OMEGA III [Concomitant]
  11. OMEPRAZOLE [Concomitant]
  12. OXYBUTYNIN CHLORIDE [Concomitant]
  13. ALLEGRA [Concomitant]
  14. FOSAMAX [Concomitant]
  15. PROTONIX [Concomitant]
  16. PROZAC [Concomitant]
  17. VALTREX [Concomitant]
  18. ROBITUSSIN [Concomitant]

REACTIONS (7)
  - CONFUSIONAL STATE [None]
  - DEATH [None]
  - DIZZINESS [None]
  - HEADACHE [None]
  - HYPOTENSION [None]
  - NASAL CONGESTION [None]
  - NAUSEA [None]
